FAERS Safety Report 23059006 (Version 2)
Quarter: 2023Q4

REPORT INFORMATION
  Report Type: Spontaneous
  Country: US (occurrence: US)
  Receive Date: 20231012
  Receipt Date: 20231023
  Transmission Date: 20240110
  Serious: Yes (Hospitalization)
  Sender: FDA-Public Use
  Company Number: US-TEVA-2023-US-2933058

PATIENT
  Age: 38 Year
  Sex: Female

DRUGS (4)
  1. LORAZEPAM [Suspect]
     Active Substance: LORAZEPAM
     Indication: Agitation
     Dosage: 2 MG
     Route: 065
  2. DIAZEPAM [Suspect]
     Active Substance: DIAZEPAM
     Indication: Product used for unknown indication
     Dosage: 40 MILLIGRAM DAILY; 10MG FOUR TIMES PER DAY
     Route: 065
  3. VENLAFAXINE [Suspect]
     Active Substance: VENLAFAXINE HYDROCHLORIDE
     Indication: Product used for unknown indication
     Dosage: 150MG EVERY MORNING AND 75MG EVERY EVENING
     Route: 065
  4. DIPHENHYDRAMINE [Suspect]
     Active Substance: DIPHENHYDRAMINE
     Indication: Intentional overdose
     Dosage: INGESTED APPROXIMATELY 50-60 TABLETS OF DIPHENHYDRAMINE OF UNKNOWN DOSE WITHIN THE LAST 24 HOURS,...
     Route: 048

REACTIONS (12)
  - Anticholinergic syndrome [Unknown]
  - Premature labour [Unknown]
  - Intentional overdose [Unknown]
  - Agitation [Unknown]
  - Mydriasis [Unknown]
  - Abdominal pain [Unknown]
  - Nausea [Unknown]
  - Anxiety [Unknown]
  - Urinary retention [Unknown]
  - Drug ineffective [Unknown]
  - Maternal exposure during pregnancy [Unknown]
  - Live birth [Unknown]
